FAERS Safety Report 4285738-1 (Version None)
Quarter: 2004Q1

REPORT INFORMATION
  Report Type: 
  Country: None (occurrence: None)
  Receive Date: 20040203
  Receipt Date: 20040203
  Transmission Date: 20041129
  Serious: No
  Sender: FDA-Public Use
  Company Number: None

PATIENT

DRUGS (1)
  1. AMINOSYN II 15% [Suspect]
     Indication: PARENTERAL NUTRITION
     Dosage: INTRAVENOUS
     Route: 042

REACTIONS (1)
  - PHARMACEUTICAL PRODUCT COMPLAINT [None]
